FAERS Safety Report 11653216 (Version 1)
Quarter: 2015Q4

REPORT INFORMATION
  Report Type: Report from Study
  Country: US (occurrence: US)
  Receive Date: 20151022
  Receipt Date: 20151022
  Transmission Date: 20160304
  Serious: Yes (Hospitalization, Other)
  Sender: FDA-Public Use
  Company Number: US-BAYER-2015-441924

PATIENT
  Age: 55 Year
  Sex: Male

DRUGS (2)
  1. NEXAVAR [Suspect]
     Active Substance: SORAFENIB
     Indication: HEPATIC CANCER
     Dosage: 800 MG, 4X200MG
     Route: 048
     Dates: start: 20150911, end: 2015
  2. NEXAVAR [Suspect]
     Active Substance: SORAFENIB
     Indication: HEPATIC CANCER
     Dosage: 200 MG, BID
     Route: 048
     Dates: start: 20150914, end: 20151010

REACTIONS (4)
  - Haematemesis [None]
  - Hepatomegaly [None]
  - Faeces discoloured [None]
  - Haematochezia [None]

NARRATIVE: CASE EVENT DATE: 2015
